FAERS Safety Report 16306343 (Version 1)
Quarter: 2019Q2

REPORT INFORMATION
  Report Type: Spontaneous
  Country: FR (occurrence: FR)
  Receive Date: 20190513
  Receipt Date: 20190513
  Transmission Date: 20190711
  Serious: Yes (Other)
  Sender: FDA-Public Use
  Company Number: FR-PFM-2019-05620

PATIENT

DRUGS (4)
  1. CISPLATINE [Suspect]
     Active Substance: CISPLATIN
     Indication: TONSIL CANCER
     Dosage: UNKNOWN
     Route: 042
     Dates: start: 201808, end: 201812
  2. NAVELBINE [Suspect]
     Active Substance: VINORELBINE TARTRATE
     Indication: OFF LABEL USE
  3. NAVELBINE [Suspect]
     Active Substance: VINORELBINE TARTRATE
     Indication: TONSIL CANCER
     Dosage: UNKNOWN
     Route: 065
     Dates: start: 201808, end: 201812
  4. VOTRIENT [Suspect]
     Active Substance: PAZOPANIB HYDROCHLORIDE
     Indication: TONSIL CANCER
     Dosage: 800 MG DAILY
     Route: 048
     Dates: start: 20190124, end: 20190403

REACTIONS (5)
  - Hypothyroidism [Not Recovered/Not Resolved]
  - Product use in unapproved indication [Unknown]
  - Off label use [Unknown]
  - Hepatocellular injury [Not Recovered/Not Resolved]
  - Cholestasis [Not Recovered/Not Resolved]

NARRATIVE: CASE EVENT DATE: 20190403
